FAERS Safety Report 25169303 (Version 1)
Quarter: 2025Q2

REPORT INFORMATION
  Report Type: Spontaneous
  Country: US (occurrence: None)
  Receive Date: 20250407
  Receipt Date: 20250407
  Transmission Date: 20250716
  Serious: Yes (Other)
  Sender: FDA-CTU
  Company Number: None

PATIENT
  Age: 51 Year
  Sex: Female
  Weight: 76.5 kg

DRUGS (7)
  1. AJOVY [Suspect]
     Active Substance: FREMANEZUMAB-VFRM
     Indication: Migraine
     Route: 050
     Dates: start: 20250303, end: 20250303
  2. HRT - 100 MG PROGESTERONE PILLS PLUS .0375 ESTROGEN PATCH [Concomitant]
  3. SUMATRIPTAN [Concomitant]
     Active Substance: SUMATRIPTAN
  4. DAILY VITAMIN COMPLEX [Concomitant]
  5. TAURINE [Concomitant]
     Active Substance: TAURINE
  6. PYRIDOXINE [Concomitant]
     Active Substance: PYRIDOXINE
  7. VITAMIN D [Concomitant]
     Active Substance: VITAMIN D NOS

REACTIONS (10)
  - Myalgia [None]
  - Arthralgia [None]
  - Muscle spasms [None]
  - Nightmare [None]
  - Fatigue [None]
  - Alopecia [None]
  - Palpitations [None]
  - Anxiety [None]
  - Insomnia [None]
  - Constipation [None]

NARRATIVE: CASE EVENT DATE: 20250307
